FAERS Safety Report 4778111-0 (Version None)
Quarter: 2005Q3

REPORT INFORMATION
  Report Type: 
  Country: None (occurrence: None)
  Receive Date: 20050922
  Receipt Date: 20050907
  Transmission Date: 20060218
  Serious: Yes (Hospitalization)
  Sender: FDA-Public Use
  Company Number: 05-000700

PATIENT
  Age: 63 Year
  Sex: Female
  Weight: 68 kg

DRUGS (4)
  1. FEMRING [Suspect]
     Indication: MENOPAUSAL SYMPTOMS
     Dosage: 0.1 MG, QD, VAGINAL
     Route: 067
     Dates: start: 20031201, end: 20050727
  2. ACETYLSALICYLIC ACID SRT [Concomitant]
  3. ALTACE [Concomitant]
  4. FEMRING (ESTRADIOL ACETATE) VAGINAL [Concomitant]

REACTIONS (2)
  - INTESTINAL OBSTRUCTION [None]
  - INTESTINAL PERFORATION [None]
